FAERS Safety Report 8798582 (Version 3)
Quarter: 2013Q3

REPORT INFORMATION
  Report Type: Report from Study
  Country: JP (occurrence: JP)
  Receive Date: 20120920
  Receipt Date: 20130805
  Transmission Date: 20140515
  Serious: Yes (Hospitalization)
  Sender: FDA-Public Use
  Company Number: JP-VERTEX PHARMACEUTICAL INC.-AE-2012-006463

PATIENT
  Age: 63 Year
  Sex: Female

DRUGS (18)
  1. VX-950 (TELAPREVIR) [Suspect]
     Indication: CHRONIC HEPATITIS C
     Dosage: 1500 MG, QD
     Route: 048
     Dates: start: 20120313, end: 20120424
  2. REBETOL [Suspect]
     Indication: CHRONIC HEPATITIS C
     Dosage: 800 MG, QD
     Route: 048
     Dates: start: 20120313, end: 20120402
  3. REBETOL [Suspect]
     Dosage: 400 MG, QD
     Route: 048
     Dates: start: 20120403, end: 20120424
  4. PEGINTRON [Suspect]
     Indication: CHRONIC HEPATITIS C
     Dosage: 1.5 ?G/KG, QW
     Route: 058
     Dates: start: 20120313, end: 20120424
  5. PEGINTRON [Suspect]
     Dosage: 1.5 ?G/KG, QW
     Route: 058
     Dates: start: 20120508, end: 20120904
  6. AMLODIN [Concomitant]
     Dosage: 5 MG, QD
     Route: 048
  7. RENIVACE [Concomitant]
     Dosage: 5 MG, QD
     Route: 048
     Dates: end: 20120428
  8. THYRADIN [Concomitant]
     Dosage: 50 MG, QD
     Route: 048
  9. LOXOPROFEN [Concomitant]
     Dosage: 180 MG, QD
     Route: 048
     Dates: start: 20120314
  10. TAKEPRON [Concomitant]
     Dosage: 15 MG, QD
     Route: 048
     Dates: start: 20120316
  11. REBAMIPIDE AMEL [Concomitant]
     Dosage: 300 MG, QD
     Route: 048
     Dates: start: 20120410
  12. LASIX [Concomitant]
     Dosage: 20 MG, QD
     Route: 048
     Dates: start: 20120427, end: 20120427
  13. RENIVEZE [Concomitant]
     Dosage: 5 MG, QD
     Route: 048
     Dates: start: 20120429, end: 20120522
  14. AMLODIPINE [Concomitant]
     Dosage: 5 MG, QD
     Route: 048
     Dates: start: 20120429, end: 20120522
  15. FLOMOX [Concomitant]
     Dosage: 300 MG, QD
     Route: 048
     Dates: start: 20120522, end: 20120527
  16. LACB R [Concomitant]
     Dosage: 3 G, QD
     Route: 048
     Dates: start: 20120522, end: 20120529
  17. LAC-B [Concomitant]
     Dosage: 3 G, QD
     Route: 048
     Dates: start: 20120619
  18. KARY UNI [Concomitant]
     Dosage: Q.S., TID
     Route: 047

REACTIONS (1)
  - Pyelonephritis [Recovered/Resolved]
